FAERS Safety Report 8332551-1 (Version None)
Quarter: 2012Q2

REPORT INFORMATION
  Report Type: 
  Country: None (occurrence: None)
  Receive Date: 20120503
  Receipt Date: 20120502
  Transmission Date: 20120825
  Serious: No
  Sender: FDA-Public Use
  Company Number: US-PFIZER INC-2012097425

PATIENT
  Sex: Female
  Weight: 77 kg

DRUGS (6)
  1. PAXIL [Suspect]
     Indication: PANIC DISORDER
     Dosage: UNK
     Dates: start: 20110101, end: 20110101
  2. WELLBUTRIN [Suspect]
     Indication: PANIC DISORDER
     Dosage: UNK
     Dates: start: 20120101, end: 20120101
  3. EFFEXOR [Suspect]
     Indication: PANIC DISORDER
     Dosage: UNK
     Dates: start: 20110601, end: 20120101
  4. KLONOPIN [Suspect]
     Indication: PANIC DISORDER
     Dosage: UNK
  5. VISTARIL [Suspect]
     Indication: PANIC DISORDER
     Dosage: 50 MG, UNK
     Dates: start: 20110601, end: 20120101
  6. NEURONTIN [Suspect]
     Indication: PANIC DISORDER
     Dosage: 100 MG, 4X/DAY
     Dates: start: 20120101, end: 20120101

REACTIONS (2)
  - BLOOD TEST ABNORMAL [None]
  - DRUG INEFFECTIVE [None]
